FAERS Safety Report 24112647 (Version 1)
Quarter: 2024Q3

REPORT INFORMATION
  Report Type: Spontaneous
  Country: US (occurrence: US)
  Receive Date: 20240719
  Receipt Date: 20240719
  Transmission Date: 20241016
  Serious: No
  Sender: MYLAN
  Company Number: US-MYLANLABS-2024M1065079

PATIENT
  Sex: Female
  Weight: 68.04 kg

DRUGS (3)
  1. TYRVAYA [Suspect]
     Active Substance: VARENICLINE TARTRATE
     Indication: Dry eye
     Dosage: 0.03 MILLIGRAM, BID (ONE SPRAY TO EACH NOSTRIL TWICE DAILY)
     Route: 045
  2. LAMICTAL [Concomitant]
     Active Substance: LAMOTRIGINE
     Indication: Bipolar disorder
     Dosage: 200 MILLIGRAM, BID
     Route: 065
  3. CLARITIN [Concomitant]
     Active Substance: LORATADINE
     Indication: Hypersensitivity
     Dosage: UNK, QD (EVERY DAY)
     Route: 065

REACTIONS (1)
  - Migraine [Unknown]
